FAERS Safety Report 9778070 (Version 3)
Quarter: 2014Q1

REPORT INFORMATION
  Report Type: Report from Study
  Country: JP (occurrence: JP)
  Receive Date: 20131223
  Receipt Date: 20140328
  Transmission Date: 20141002
  Serious: Yes (Life-Threatening, Hospitalization)
  Sender: FDA-Public Use
  Company Number: JP-AMGEN-JPNCT2013089675

PATIENT
  Age: 33 Year
  Sex: Female
  Weight: 75 kg

DRUGS (9)
  1. DARBEPOETIN ALFA [Suspect]
     Indication: NEPHROGENIC ANAEMIA
     Dosage: 120 MUG, 1X/5WEEKS
     Route: 040
     Dates: start: 20111129
  2. TANATRIL [Concomitant]
     Indication: GLOMERULONEPHRITIS CHRONIC
     Dosage: UNK
     Route: 048
  3. DIOVAN [Concomitant]
     Indication: GLOMERULONEPHRITIS CHRONIC
     Dosage: UNK
     Route: 048
  4. CRESTOR [Concomitant]
     Dosage: UNK
     Route: 048
  5. ALLOPURINOL [Concomitant]
     Dosage: UNK
     Route: 048
  6. BASEN                              /01290601/ [Concomitant]
     Dosage: UNK
     Route: 048
  7. NESINA [Concomitant]
     Dosage: UNK
     Route: 048
  8. JUSO [Concomitant]
     Indication: GLOMERULONEPHRITIS CHRONIC
     Dosage: UNK
     Route: 048
  9. FERROMIA [Concomitant]
     Dosage: UNK
     Route: 048

REACTIONS (3)
  - Cervical dysplasia [Recovered/Resolved]
  - Abortion induced [Recovered/Resolved]
  - Hyperphosphataemia [Not Recovered/Not Resolved]
